FAERS Safety Report 5422521-5 (Version None)
Quarter: 2007Q3

REPORT INFORMATION
  Report Type: 
  Country: None (occurrence: None)
  Receive Date: 20070822
  Receipt Date: 20070815
  Transmission Date: 20080115
  Serious: Yes (Death)
  Sender: FDA-Public Use
  Company Number: CA-ELI_LILLY_AND_COMPANY-CA200708003360

PATIENT
  Age: 67 Year
  Sex: Male

DRUGS (1)
  1. XIGRIS [Suspect]
     Indication: PNEUMONIA
     Dosage: UNK, UNK
     Dates: start: 20070101

REACTIONS (1)
  - PNEUMONIA [None]
